FAERS Safety Report 9531760 (Version 3)
Quarter: 2014Q1

REPORT INFORMATION
  Report Type: Spontaneous
  Country: US (occurrence: US)
  Receive Date: 20130918
  Receipt Date: 20140227
  Transmission Date: 20141002
  Serious: No
  Sender: FDA-Public Use
  Company Number: US-PFIZER INC-2013264351

PATIENT
  Age: 77 Year
  Sex: Female

DRUGS (11)
  1. INLYTA [Suspect]
     Indication: METASTATIC RENAL CELL CARCINOMA
     Dosage: 5 MG, TWICE A DAY
     Route: 048
     Dates: start: 201306
  2. INLYTA [Suspect]
     Dosage: 5 MG, ONE PILL A DAY SOMETIME
     Route: 048
  3. XANAX [Concomitant]
     Dosage: UNK
  4. VITAMIN D [Concomitant]
     Dosage: UNK
  5. SYNTHROID [Concomitant]
     Dosage: UNK
  6. NORVASC [Concomitant]
     Dosage: UNK
  7. LOPRESSOR [Concomitant]
     Dosage: UNK
  8. LANTUS [Concomitant]
     Dosage: UNK
  9. IRON [Concomitant]
     Dosage: UNK
  10. DILAUDID [Concomitant]
     Dosage: UNK
  11. VITAMIN B12 [Concomitant]
     Dosage: UNK

REACTIONS (5)
  - Fatigue [Unknown]
  - Malaise [Unknown]
  - Oedema peripheral [Unknown]
  - Joint swelling [Unknown]
  - Wound secretion [Unknown]
